FAERS Safety Report 25953070 (Version 1)
Quarter: 2025Q4

REPORT INFORMATION
  Report Type: Spontaneous
  Country: EU (occurrence: EU)
  Receive Date: 20251023
  Receipt Date: 20251023
  Transmission Date: 20260118
  Serious: Yes (Other)
  Sender: FERRING
  Company Number: None

PATIENT

DRUGS (1)
  1. PICOPREP [Suspect]
     Active Substance: ANHYDROUS CITRIC ACID\MAGNESIUM OXIDE\SODIUM PICOSULFATE
     Indication: Irritable bowel syndrome
     Dosage: 2 DOSAGE FORM
     Route: 048
     Dates: start: 20251011, end: 20251011

REACTIONS (2)
  - Spontaneous haematoma [Recovering/Resolving]
  - Product use in unapproved indication [Recovered/Resolved]

NARRATIVE: CASE EVENT DATE: 20251011
